FAERS Safety Report 9144460 (Version 2)
Quarter: 2013Q1

REPORT INFORMATION
  Report Type: Report from Study
  Country: DE (occurrence: DE)
  Receive Date: 20130306
  Receipt Date: 20130320
  Transmission Date: 20140127
  Serious: Yes (Death, Hospitalization)
  Sender: FDA-Public Use
  Company Number: DE-ACTELION-A-US2013-80292

PATIENT
  Age: 55 Year
  Sex: Male

DRUGS (3)
  1. VENTAVIS [Suspect]
     Indication: PULMONARY ARTERIAL HYPERTENSION
     Dosage: 5 ?G,
     Route: 055
     Dates: start: 20121212, end: 2013
  2. SILDENAFIL [Concomitant]
  3. INSULIN [Concomitant]

REACTIONS (4)
  - Acute respiratory distress syndrome [Fatal]
  - Sepsis [Fatal]
  - Multi-organ failure [Fatal]
  - Influenza [Unknown]
